FAERS Safety Report 5018914-0 (Version None)
Quarter: 2006Q2

REPORT INFORMATION
  Report Type: 
  Country: None (occurrence: None)
  Receive Date: 20060531
  Receipt Date: 20060523
  Transmission Date: 20061013
  Serious: Yes (Other)
  Sender: FDA-Public Use
  Company Number: 2006067763

PATIENT
  Age: 3 Year
  Sex: Female

DRUGS (4)
  1. ZYRTEC [Suspect]
     Indication: HYPERSENSITIVITY
     Dosage: 7.5 MG (7.5 MG, 1 IN 1 D)
     Dates: start: 20050101, end: 20060518
  2. ACETAMINOPHEN [Suspect]
     Indication: ILL-DEFINED DISORDER
     Dates: end: 20060518
  3. FLONASE [Concomitant]
  4. PULMICORT [Concomitant]

REACTIONS (6)
  - BACK PAIN [None]
  - HEPATITIS C [None]
  - MALAISE [None]
  - NIGHT SWEATS [None]
  - PNEUMONIA [None]
  - UNEVALUABLE EVENT [None]
